FAERS Safety Report 9881608 (Version 2)
Quarter: 2014Q1

REPORT INFORMATION
  Report Type: Spontaneous
  Country: IL (occurrence: IL)
  Receive Date: 20140207
  Receipt Date: 20140207
  Transmission Date: 20141002
  Serious: Yes (Death, Hospitalization, Other)
  Sender: FDA-Public Use
  Company Number: IL-CELGENEUS-082-21880-13114894

PATIENT
  Age: 80 Year
  Sex: Male

DRUGS (4)
  1. REVLIMID [Suspect]
     Indication: PLASMA CELL MYELOMA
     Route: 048
     Dates: start: 20130409
  2. REVLIMID [Suspect]
     Route: 048
     Dates: start: 20130812, end: 201311
  3. DEXAMETHASONE [Concomitant]
     Indication: PLASMA CELL MYELOMA
     Route: 065
     Dates: start: 20130409
  4. DEXAMETHASONE [Concomitant]
     Route: 065
     Dates: start: 20130812

REACTIONS (4)
  - Death [Fatal]
  - Plasma cell myeloma [Not Recovered/Not Resolved]
  - Neutropenia [Unknown]
  - Diarrhoea [Unknown]
